FAERS Safety Report 24011553 (Version 2)
Quarter: 2024Q3

REPORT INFORMATION
  Report Type: Report from Study
  Country: US (occurrence: US)
  Receive Date: 20240625
  Receipt Date: 20240806
  Transmission Date: 20241016
  Serious: No
  Sender: LUNDBECK
  Company Number: US-LUNDBECK-DKLU3078080

PATIENT

DRUGS (2)
  1. VYEPTI [Suspect]
     Active Substance: EPTINEZUMAB\EPTINEZUMAB-JJMR
     Dosage: 100 003
     Route: 041
     Dates: start: 20240507
  2. VYEPTI [Suspect]
     Active Substance: EPTINEZUMAB\EPTINEZUMAB-JJMR
     Indication: Migraine

REACTIONS (4)
  - Drug ineffective [Not Recovered/Not Resolved]
  - Injection site pruritus [Not Recovered/Not Resolved]
  - Itching scar [Not Recovered/Not Resolved]
  - Pruritus [Not Recovered/Not Resolved]

NARRATIVE: CASE EVENT DATE: 20240507
